FAERS Safety Report 5717314-5 (Version None)
Quarter: 2008Q2

REPORT INFORMATION
  Report Type: 
  Country: None (occurrence: None)
  Receive Date: 20080424
  Receipt Date: 20080424
  Transmission Date: 20081010
  Serious: Yes (Hospitalization)
  Sender: FDA-Public Use
  Company Number: None

PATIENT
  Age: 43 Year
  Sex: Male

DRUGS (4)
  1. CRESTOR [Suspect]
     Indication: HYPERLIPIDAEMIA
     Dosage: 10 MG  QD  PO
     Route: 048
     Dates: start: 20070128, end: 20070510
  2. ZIDOVUDINE [Suspect]
     Indication: HIV INFECTION
     Dosage: 300MG BID PO
     Route: 048
  3. CRIXIVAN [Suspect]
     Indication: HIV INFECTION
     Dosage: 800 MG TID PO
     Route: 048
  4. ZERIT [Suspect]
     Indication: HIV INFECTION
     Dosage: 400 MG BID PO
     Route: 048

REACTIONS (5)
  - ALANINE AMINOTRANSFERASE INCREASED [None]
  - ASPARTATE AMINOTRANSFERASE INCREASED [None]
  - HYPERGLYCAEMIA [None]
  - RENAL FAILURE ACUTE [None]
  - RHABDOMYOLYSIS [None]
